FAERS Safety Report 11072347 (Version 7)
Quarter: 2016Q2

REPORT INFORMATION
  Report Type: Spontaneous
  Country: US (occurrence: US)
  Receive Date: 20150428
  Receipt Date: 20160504
  Transmission Date: 20160815
  Serious: Yes (Hospitalization, Other)
  Sender: FDA-Public Use
  Company Number: US-009507513-1504USA021679

PATIENT
  Age: 32 Year
  Sex: Female
  Weight: 127.8 kg

DRUGS (3)
  1. XARELTO [Concomitant]
     Active Substance: RIVAROXABAN
  2. PROVENTIL [Concomitant]
     Active Substance: ALBUTEROL
  3. NEXPLANON [Suspect]
     Active Substance: ETONOGESTREL
     Indication: CONTRACEPTION
     Dosage: SINGLE ROD; LEFT ARM
     Route: 058
     Dates: start: 20140905

REACTIONS (6)
  - Postoperative wound complication [Unknown]
  - Pregnancy with implant contraceptive [Recovered/Resolved]
  - Caesarean section [Unknown]
  - Unintended pregnancy [Recovered/Resolved]
  - Complication associated with device [Not Recovered/Not Resolved]
  - Premature delivery [Unknown]

NARRATIVE: CASE EVENT DATE: 20150314
